FAERS Safety Report 8229169-8 (Version None)
Quarter: 2012Q1

REPORT INFORMATION
  Report Type: 
  Country: None (occurrence: None)
  Receive Date: 20120322
  Receipt Date: 20120313
  Transmission Date: 20120608
  Serious: Yes (Other)
  Sender: FDA-Public Use
  Company Number: ES-JNJFOC-20120306718

PATIENT
  Age: 14 Year
  Sex: Male

DRUGS (2)
  1. REMICADE [Suspect]
     Indication: CROHN'S DISEASE
     Route: 042
     Dates: start: 20110601
  2. METHOTREXATE [Suspect]
     Indication: CROHN'S DISEASE
     Route: 065
     Dates: start: 20110601

REACTIONS (2)
  - CHOLECYSTITIS [None]
  - LIVER ABSCESS [None]
